FAERS Safety Report 14284567 (Version 1)
Quarter: 2017Q4

REPORT INFORMATION
  Report Type: Report from Study
  Country: ZA (occurrence: ZA)
  Receive Date: 20171214
  Receipt Date: 20171214
  Transmission Date: 20180321
  Serious: Yes (Death, Hospitalization, Other)
  Sender: FDA-Public Use
  Company Number: ZA-AMGEN-ZAFSL2017185152

PATIENT
  Age: 37 Year
  Sex: Male

DRUGS (1)
  1. ARANESP [Suspect]
     Active Substance: DARBEPOETIN ALFA
     Indication: CHRONIC KIDNEY DISEASE
     Dosage: 100 MUG, QWK
     Route: 058
     Dates: start: 201704, end: 20171202

REACTIONS (2)
  - Multiple organ dysfunction syndrome [Fatal]
  - Disease progression [Unknown]

NARRATIVE: CASE EVENT DATE: 201711
